FAERS Safety Report 4485524-3 (Version None)
Quarter: 2004Q4

REPORT INFORMATION
  Report Type: 
  Country: None (occurrence: None)
  Receive Date: 20041021
  Receipt Date: 20041007
  Transmission Date: 20050328
  Serious: Yes (Other)
  Sender: FDA-Public Use
  Company Number: 1781-084-3

PATIENT
  Weight: 70.3075 kg

DRUGS (1)
  1. AMINOPHYLLINE INJ. 25MG/ML 20 ML VIAL [Suspect]
     Indication: CARDIAC STRESS TEST
     Dosage: 10 MG IV
     Route: 042
     Dates: start: 20041006

REACTIONS (1)
  - BRADYCARDIA [None]
